FAERS Safety Report 5635660-0 (Version None)
Quarter: 2008Q1

REPORT INFORMATION
  Report Type: 
  Country: None (occurrence: None)
  Receive Date: 20080219
  Receipt Date: 20080205
  Transmission Date: 20080703
  Serious: Yes (Hospitalization)
  Sender: FDA-Public Use
  Company Number: 200802AGG00777

PATIENT
  Age: 82 Year
  Sex: Male

DRUGS (4)
  1. AGGRASTAT [Suspect]
     Indication: ACUTE MYOCARDIAL INFARCTION
     Dosage: INTRAVENOUS BOLUS, INTRAVENOUS DRIP
     Route: 040
     Dates: start: 20071224, end: 20071224
  2. AGGRASTAT [Suspect]
     Indication: ACUTE MYOCARDIAL INFARCTION
     Dosage: INTRAVENOUS BOLUS, INTRAVENOUS DRIP
     Route: 040
     Dates: start: 20071224, end: 20071225
  3. CLOPIDOGREL BISULFATE [Concomitant]
  4. ASPIRIN /0002701/ [Concomitant]

REACTIONS (1)
  - LEFT VENTRICULAR FAILURE [None]
